FAERS Safety Report 8264204-2 (Version None)
Quarter: 2012Q2

REPORT INFORMATION
  Report Type: 
  Country: None (occurrence: None)
  Receive Date: 20120406
  Receipt Date: 20120314
  Transmission Date: 20120825
  Serious: No
  Sender: FDA-Public Use
  Company Number: US-JNJFOC-20120308379

PATIENT
  Sex: Male
  Weight: 108.86 kg

DRUGS (3)
  1. SOMA [Concomitant]
     Indication: MUSCLE SPASMS
     Route: 048
  2. DURAGESIC-100 [Suspect]
     Indication: ARTHRALGIA
     Route: 062
  3. AMITRIPTYLINE HCL [Concomitant]
     Indication: HYPERSOMNIA
     Route: 048
     Dates: start: 19980101

REACTIONS (4)
  - HYPERHIDROSIS [None]
  - PRODUCT QUALITY ISSUE [None]
  - WRONG TECHNIQUE IN DRUG USAGE PROCESS [None]
  - DERMATITIS CONTACT [None]
